FAERS Safety Report 6093718-9 (Version None)
Quarter: 2009Q1

REPORT INFORMATION
  Report Type: 
  Country: None (occurrence: None)
  Receive Date: 20090223
  Receipt Date: 20090223
  Transmission Date: 20090719
  Serious: Yes (Hospitalization)
  Sender: FDA-Public Use
  Company Number: None

PATIENT
  Age: 40 Year
  Sex: Female
  Weight: 86.1834 kg

DRUGS (1)
  1. AZATHROPRINE 50 MG SAFEWAY [Suspect]
     Indication: MULTIPLE SCLEROSIS
     Dosage: 50 MG ONE DAILY- PO
     Route: 048
     Dates: start: 20090219, end: 20090220

REACTIONS (3)
  - CONVULSION [None]
  - DIZZINESS [None]
  - VOMITING [None]
